FAERS Safety Report 9515260 (Version 3)
Quarter: 2013Q3

REPORT INFORMATION
  Report Type: Report from Study
  Country: JP (occurrence: JP)
  Receive Date: 20130911
  Receipt Date: 20130918
  Transmission Date: 20140515
  Serious: Yes (Other)
  Sender: FDA-Public Use
  Company Number: JP-JNJFOC-20130707946

PATIENT
  Age: 64 Year
  Sex: Male
  Weight: 69 kg

DRUGS (11)
  1. SIMPONI [Suspect]
     Indication: RHEUMATOID ARTHRITIS
     Route: 058
     Dates: start: 20130403, end: 20130403
  2. METHOTREXATE [Concomitant]
     Indication: RHEUMATOID ARTHRITIS
     Route: 065
  3. PREDONINE [Concomitant]
     Indication: RHEUMATOID ARTHRITIS
     Route: 048
  4. CALONAL [Concomitant]
     Indication: RHEUMATOID ARTHRITIS
     Route: 048
     Dates: start: 20120731
  5. CYTOTEC [Concomitant]
     Indication: PROPHYLAXIS
     Route: 048
  6. MARZULENE-S [Concomitant]
     Indication: PROPHYLAXIS
     Route: 048
  7. CRESTOR [Concomitant]
     Indication: HYPERLIPIDAEMIA
     Route: 048
  8. CONIEL [Concomitant]
     Indication: ANGINA UNSTABLE
     Route: 048
  9. FOLIAMIN [Concomitant]
     Indication: PROPHYLAXIS
     Route: 065
  10. LYRICA [Concomitant]
     Indication: LUMBAR SPINAL STENOSIS
     Route: 048
  11. NITROGLYCERIN [Concomitant]
     Indication: ANGINA UNSTABLE
     Route: 065

REACTIONS (1)
  - Angina unstable [Recovered/Resolved]
